FAERS Safety Report 24800226 (Version 2)
Quarter: 2025Q3

REPORT INFORMATION
  Report Type: Spontaneous
  Country: EU (occurrence: EU)
  Receive Date: 20250102
  Receipt Date: 20250702
  Transmission Date: 20251020
  Serious: No
  Sender: BLUEPRINT MEDICINES
  Company Number: EU-Blueprint Medicines Corporation-2024-AER-00059

PATIENT
  Age: 22 Year
  Sex: Female
  Weight: 65 kg

DRUGS (2)
  1. AVAPRITINIB [Suspect]
     Active Substance: AVAPRITINIB
     Indication: Brain stem glioma
     Route: 065
     Dates: start: 20241224, end: 20250304
  2. BACLOFEN [Concomitant]
     Active Substance: BACLOFEN
     Indication: Muscle contractions involuntary
     Route: 065
     Dates: start: 20240516, end: 20250304

REACTIONS (2)
  - Periorbital oedema [Recovered/Resolved]
  - Off label use [Unknown]

NARRATIVE: CASE EVENT DATE: 20250102
